FAERS Safety Report 6580447-8 (Version None)
Quarter: 2010Q1

REPORT INFORMATION
  Report Type: 
  Country: None (occurrence: None)
  Receive Date: 20100212
  Receipt Date: 20100209
  Transmission Date: 20100710
  Serious: Yes (Death)
  Sender: FDA-Public Use
  Company Number: PHHY2010MX07215

PATIENT
  Age: 66 Year
  Sex: Male

DRUGS (4)
  1. DIOVAN [Suspect]
     Dosage: UNK
  2. AMARYL [Concomitant]
     Indication: DIABETES MELLITUS
     Dosage: 1 TABLET PER DAY
     Dates: start: 20060101
  3. PROPRANOLOL [Concomitant]
     Indication: HYPERTENSION
     Dosage: 1 TABLET PER DAY
     Dates: start: 20060101
  4. CRESTOR [Concomitant]
     Indication: BLOOD CHOLESTEROL
     Dosage: 1 TABLET PER DAY
     Dates: start: 20060101

REACTIONS (2)
  - INFARCTION [None]
  - PULMONARY OEDEMA [None]
